FAERS Safety Report 5505537-X (Version None)
Quarter: 2007Q4

REPORT INFORMATION
  Report Type: 
  Country: None (occurrence: None)
  Receive Date: 20071102
  Receipt Date: 20071031
  Transmission Date: 20080405
  Serious: Yes (Life-Threatening, Other)
  Sender: FDA-Public Use
  Company Number: SE-SHR-SE-2007-040577

PATIENT
  Age: 73 Year
  Sex: Female

DRUGS (1)
  1. ULTRAVIST 300 [Suspect]
     Dosage: 130 ML, 1 DOSE
     Route: 042
     Dates: start: 20070731, end: 20070731

REACTIONS (4)
  - CYANOSIS [None]
  - LOSS OF CONSCIOUSNESS [None]
  - MUSCLE SPASMS [None]
  - RESPIRATORY ARREST [None]
